FAERS Safety Report 7148651-8 (Version None)
Quarter: 2010Q4

REPORT INFORMATION
  Report Type: 
  Country: None (occurrence: None)
  Receive Date: 20101209
  Receipt Date: 20101206
  Transmission Date: 20110411
  Serious: Yes (Death)
  Sender: FDA-Public Use
  Company Number: ZA-ROXANE LABORATORIES, INC.-2010-RO-01584RO

PATIENT
  Age: 26 Year
  Sex: Female
  Weight: 59 kg

DRUGS (6)
  1. MORPHINE [Suspect]
     Indication: PAIN
     Dosage: 10 MG
     Route: 042
  2. MORPHINE [Suspect]
     Dosage: 5 MG
     Route: 042
  3. SUFENTANIL CITRATE [Concomitant]
     Indication: ANAESTHESIA
     Dosage: 10 MCG
  4. PROPOFOL [Concomitant]
     Indication: ANAESTHESIA
     Dosage: 150 MCG
  5. DESFLURANE [Concomitant]
     Indication: ANAESTHESIA
     Dosage: 150 MCG
  6. NITROUS OXIDE [Concomitant]
     Indication: ANAESTHESIA

REACTIONS (3)
  - CARDIAC ARREST [None]
  - HYPOXIC-ISCHAEMIC ENCEPHALOPATHY [None]
  - RESPIRATORY DEPRESSION [None]
